FAERS Safety Report 4541099-1 (Version None)
Quarter: 2004Q4

REPORT INFORMATION
  Report Type: 
  Country: None (occurrence: None)
  Receive Date: 20041228
  Receipt Date: 20041210
  Transmission Date: 20050328
  Serious: Yes (Life-Threatening, Hospitalization)
  Sender: FDA-Public Use
  Company Number: 6012173

PATIENT
  Age: 55 Year
  Sex: Female

DRUGS (4)
  1. LEVOTHYROXINE SODIUM [Suspect]
     Dosage: 75 MCG (75 MCG, 1 IN 1 D) ORAL
     Route: 048
     Dates: end: 20041101
  2. LORATADINE [Suspect]
     Dosage: (1 IN 1 D) ORAL
     Route: 048
     Dates: end: 20041101
  3. PRAZEPAM [Suspect]
     Dosage: 30 MG (10 MG, 3 IN 1 D) ORAL
     Route: 048
     Dates: end: 20041101
  4. EFFEXOR [Suspect]
     Dosage: 112,5 MG (37,5 MG, 3 IN 1 D) ORAL
     Route: 048
     Dates: start: 20041001

REACTIONS (9)
  - AREFLEXIA [None]
  - BLOOD POTASSIUM DECREASED [None]
  - BODY TEMPERATURE DECREASED [None]
  - CARDIAC ARREST [None]
  - CIRCULATORY COLLAPSE [None]
  - ELECTROCARDIOGRAM QT CORRECTED INTERVAL PROLONGED [None]
  - ELECTROCARDIOGRAM QT PROLONGED [None]
  - MYDRIASIS [None]
  - VENTRICULAR TACHYCARDIA [None]
